FAERS Safety Report 5576353-8 (Version None)
Quarter: 2007Q4

REPORT INFORMATION
  Report Type: 
  Country: None (occurrence: None)
  Receive Date: 20071228
  Receipt Date: 20071217
  Transmission Date: 20080405
  Serious: Yes (Life-Threatening, Hospitalization)
  Sender: FDA-Public Use
  Company Number: JP-BAYER-200710894BYL

PATIENT
  Age: 71 Year
  Sex: Female
  Weight: 47 kg

DRUGS (14)
  1. GLUCOBAY [Interacting]
     Indication: DIABETES MELLITUS
     Dosage: TOTAL DAILY DOSE: 50 MG  UNIT DOSE: 50 MG
     Route: 048
     Dates: end: 20060501
  2. GLUCOBAY [Interacting]
     Dosage: TOTAL DAILY DOSE: 300 MG  UNIT DOSE: 50 MG
     Route: 048
     Dates: start: 20060501, end: 20061126
  3. ASPIRIN [Suspect]
     Indication: ANGINA PECTORIS
     Dosage: TOTAL DAILY DOSE: 100 MG  UNIT DOSE: 100 MG
     Route: 048
  4. WARFARIN SODIUM [Interacting]
     Indication: ANGINA PECTORIS
     Dosage: TOTAL DAILY DOSE: 1 MG
     Route: 048
  5. PARAMIDIN [Interacting]
     Indication: ANGINA PECTORIS
     Dosage: TOTAL DAILY DOSE: 300 MG
     Route: 048
  6. GLIMICRON [Interacting]
     Indication: DIABETES MELLITUS
     Dosage: TOTAL DAILY DOSE: 40 MG  UNIT DOSE: 40 MG
     Route: 048
     Dates: end: 20060501
  7. GLIMICRON [Interacting]
     Dosage: TOTAL DAILY DOSE: 120 MG  UNIT DOSE: 40 MG
     Route: 048
     Dates: start: 20060501, end: 20061126
  8. ONON [Interacting]
     Indication: UPPER RESPIRATORY TRACT INFLAMMATION
     Dosage: TOTAL DAILY DOSE: 450 MG  UNIT DOSE: 112.5 MG
     Route: 048
     Dates: start: 20061123, end: 20061125
  9. ITOROL [Concomitant]
     Indication: ANGINA PECTORIS
     Dosage: UNIT DOSE: 10 MG
     Route: 048
  10. NORVASC [Concomitant]
     Indication: HYPERTENSION
     Dosage: TOTAL DAILY DOSE: 5 MG  UNIT DOSE: 5 MG
     Route: 048
  11. PRAVASTATIN [Concomitant]
     Indication: HYPERLIPIDAEMIA
     Dosage: TOTAL DAILY DOSE: 10 MG  UNIT DOSE: 10 MG
     Route: 048
  12. RISEDRONATE SODIUM [Concomitant]
     Indication: OSTEOPOROSIS
     Dosage: TOTAL DAILY DOSE: 2.5 MG  UNIT DOSE: 2.5 MG
     Route: 048
  13. KLARICID [Concomitant]
     Indication: UPPER RESPIRATORY TRACT INFECTION
     Dosage: UNIT DOSE: 200 MG
     Route: 048
     Dates: start: 20061123, end: 20061125
  14. SAWATENE [Concomitant]
     Indication: UPPER RESPIRATORY TRACT INFLAMMATION
     Dosage: TOTAL DAILY DOSE: 1000 MG
     Route: 048
     Dates: start: 20061123, end: 20061125

REACTIONS (5)
  - ALTERED STATE OF CONSCIOUSNESS [None]
  - DYSARTHRIA [None]
  - HYPOGLYCAEMIA [None]
  - MALAISE [None]
  - MUSCULAR WEAKNESS [None]
